FAERS Safety Report 9839465 (Version 1)
Quarter: 2014Q1

REPORT INFORMATION
  Report Type: Spontaneous
  Country: US (occurrence: US)
  Receive Date: 20140124
  Receipt Date: 20140124
  Transmission Date: 20141002
  Serious: No
  Sender: FDA-Public Use
  Company Number: US-009507513-1401USA010136

PATIENT
  Age: 82 Year
  Sex: Female

DRUGS (1)
  1. HYZAAR [Suspect]
     Dosage: 1 DF, QD
     Route: 048

REACTIONS (2)
  - Blood pressure fluctuation [Unknown]
  - Product quality issue [Unknown]
